FAERS Safety Report 4399438-0 (Version None)
Quarter: 2004Q3

REPORT INFORMATION
  Report Type: 
  Country: None (occurrence: None)
  Receive Date: 20040712
  Receipt Date: 20040621
  Transmission Date: 20050211
  Serious: Yes (Other)
  Sender: FDA-Public Use
  Company Number: USA040566565

PATIENT
  Age: 7 Year
  Sex: Male
  Weight: 35 kg

DRUGS (6)
  1. STRATTERA [Suspect]
     Dosage: 40 MG DAY
     Dates: start: 20040419
  2. SINGULAIR [Concomitant]
  3. ZYRTEC (CETIRIZINE HYDROHCLORIDE) [Concomitant]
  4. RHINOCORT [Concomitant]
  5. ALBUTEROL [Concomitant]
  6. FLOVENT [Concomitant]

REACTIONS (3)
  - BLINDNESS TRANSIENT [None]
  - EYE PAIN [None]
  - PHOTOPSIA [None]
